FAERS Safety Report 7290906-0 (Version None)
Quarter: 2011Q1

REPORT INFORMATION
  Report Type: 
  Country: None (occurrence: None)
  Receive Date: 20110214
  Receipt Date: 20110208
  Transmission Date: 20110831
  Serious: Yes (Death, Other)
  Sender: FDA-Public Use
  Company Number: TR-JNJFOC-20110202704

PATIENT
  Age: 57 Year
  Sex: Male

DRUGS (5)
  1. DOXORUBICIN HCL [Suspect]
     Indication: B-CELL LYMPHOMA
     Dosage: 6 CYCLES
     Route: 042
  2. VINCRISTINE [Suspect]
     Indication: B-CELL LYMPHOMA
     Dosage: 6 CYCLES
     Route: 065
  3. PREDNISONE [Suspect]
     Indication: B-CELL LYMPHOMA
     Dosage: 6 CYCLES
     Route: 065
  4. RITUXIMAB [Suspect]
     Indication: B-CELL LYMPHOMA
     Dosage: 6 CYCLES
     Route: 065
  5. CYCLOPHOSPHAMIDE [Suspect]
     Indication: B-CELL LYMPHOMA
     Dosage: 6 CYCLES
     Route: 065

REACTIONS (2)
  - PNEUMONIA [None]
  - SEPSIS [None]
